FAERS Safety Report 7749559-7 (Version None)
Quarter: 2011Q3

REPORT INFORMATION
  Report Type: 
  Country: None (occurrence: None)
  Receive Date: 20110914
  Receipt Date: 20110906
  Transmission Date: 20111222
  Serious: Yes (Hospitalization)
  Sender: FDA-Public Use
  Company Number: NZ-B.I. PHARMACEUTICALS,INC./RIDGEFIELD-2011-AU-01276AU

PATIENT
  Age: 65 Year
  Sex: Male
  Weight: 130 kg

DRUGS (1)
  1. PRADAXA [Suspect]
     Indication: ATRIAL FIBRILLATION
     Dosage: 220 MG
     Dates: start: 20110701, end: 20110805

REACTIONS (4)
  - TREATMENT FAILURE [None]
  - PAIN IN EXTREMITY [None]
  - EMBOLISM ARTERIAL [None]
  - HAEMATOMA [None]
